FAERS Safety Report 7398221-1 (Version None)
Quarter: 2011Q2

REPORT INFORMATION
  Report Type: 
  Country: None (occurrence: None)
  Receive Date: 20110406
  Receipt Date: 20110325
  Transmission Date: 20111010
  Serious: Yes (Disabling)
  Sender: FDA-Public Use
  Company Number: FR-WATSON-2011-03986

PATIENT
  Sex: Male

DRUGS (1)
  1. TRELSTAR [Suspect]
     Indication: PROSTATE CANCER
     Dosage: 1 INJECTION EVERY THREE MONTHS
     Route: 030
     Dates: start: 20100601

REACTIONS (3)
  - VISUAL ACUITY REDUCED [None]
  - RETINITIS PIGMENTOSA [None]
  - CONDITION AGGRAVATED [None]
